FAERS Safety Report 7419888-5 (Version None)
Quarter: 2011Q2

REPORT INFORMATION
  Report Type: 
  Country: None (occurrence: None)
  Receive Date: 20110418
  Receipt Date: 20091030
  Transmission Date: 20111010
  Serious: Yes (Hospitalization, Other)
  Sender: FDA-Public Use
  Company Number: US-BAYER-200937672NA

PATIENT
  Age: 66 Year
  Sex: Female
  Weight: 67.574 kg

DRUGS (29)
  1. TRASYLOL [Suspect]
     Indication: CORONARY ARTERY BYPASS
     Dosage: 100 ML, BOLUS
     Route: 042
     Dates: start: 20060726
  2. LANTUS [Concomitant]
     Dosage: 20 U, UNK
     Route: 058
  3. FENTANYL [Concomitant]
     Dosage: 50 MCG
     Route: 042
     Dates: start: 20060825
  4. MANNITOL [Concomitant]
     Dosage: 100 MG PUMP PRIME
     Dates: start: 20060826
  5. EPINEPHRINE [Concomitant]
     Dosage: UNK
     Route: 041
     Dates: start: 20060826
  6. TRASYLOL [Suspect]
     Dosage: 200 ML, PUMP PRIME
     Dates: start: 20060726
  7. DIOVAN HCT [Concomitant]
     Dosage: 160/25 DAILY
     Route: 048
  8. NITROGLYCERIN [Concomitant]
     Dosage: 1/150
     Route: 060
  9. NITROGLYCERIN [Concomitant]
     Dosage: UNK
     Route: 041
     Dates: start: 20060826
  10. MORPHINE [Concomitant]
     Dosage: 4 MG
     Route: 042
     Dates: start: 20060825
  11. TRASYLOL [Suspect]
     Dosage: 50 ML, Q1HR
     Route: 042
     Dates: start: 20060726
  12. LOVENOX [Concomitant]
     Dosage: 1MG/KG
     Route: 058
     Dates: start: 20060825
  13. CARDIOPLEGIA [Concomitant]
     Dosage: 814
     Route: 042
     Dates: start: 20060826
  14. LIDOCAINE [Concomitant]
     Dosage: 100
     Route: 041
     Dates: start: 20060826
  15. ASPIRIN [Concomitant]
     Dosage: 162 MG, UNK
     Route: 048
  16. TOPROL-XL [Concomitant]
     Dosage: 100 MG, QD
     Route: 048
  17. LOPRESSOR [Concomitant]
     Dosage: 5MG
     Route: 042
     Dates: start: 20060825
  18. PEPCID [Concomitant]
     Dosage: 20 MG
     Route: 042
     Dates: start: 20060825
  19. INSULIN [Concomitant]
     Dosage: 20 U
     Dates: start: 20060826
  20. VERSED [Concomitant]
     Dosage: 1 MG
     Route: 042
     Dates: start: 20060825
  21. HEPARIN [Concomitant]
     Dosage: VARIABLE
     Route: 041
     Dates: start: 20060825
  22. HEPARIN [Concomitant]
     Dosage: 32,000 U
     Route: 041
     Dates: start: 20060826
  23. INTEGRILIN [Concomitant]
     Dosage: UNK
     Route: 041
     Dates: start: 20060825
  24. RED BLOOD CELLS [Concomitant]
     Dosage: 1 U
     Route: 042
     Dates: start: 20060826
  25. AVANDIA [Concomitant]
     Dosage: 8 MG, UNK
     Route: 048
  26. AMARYL [Concomitant]
     Dosage: 4 MG, UNK
     Route: 048
  27. PLAVIX [Concomitant]
     Dosage: 300 MG
     Route: 048
     Dates: start: 20060825
  28. PROTAMINE SULFATE [Concomitant]
     Dosage: 250 MG
     Route: 042
     Dates: start: 20060826
  29. PLATELETS [Concomitant]
     Dosage: 1 U
     Route: 042
     Dates: start: 20060826

REACTIONS (9)
  - APHASIA [None]
  - PAIN [None]
  - STRESS [None]
  - ANXIETY [None]
  - FEAR [None]
  - UNEVALUABLE EVENT [None]
  - CEREBROVASCULAR ACCIDENT [None]
  - INJURY [None]
  - EMOTIONAL DISTRESS [None]
